FAERS Safety Report 25535019 (Version 2)
Quarter: 2025Q3

REPORT INFORMATION
  Report Type: Report from Study
  Country: US (occurrence: US)
  Receive Date: 20250709
  Receipt Date: 20250809
  Transmission Date: 20251021
  Serious: Yes (Other)
  Sender: ALEXION PHARMACEUTICALS
  Company Number: US-AstraZeneca-CH-00906037A

PATIENT

DRUGS (1)
  1. ULTOMIRIS [Suspect]
     Active Substance: RAVULIZUMAB-CWVZ
     Indication: Myasthenia gravis
     Route: 065

REACTIONS (6)
  - Nausea [Not Recovered/Not Resolved]
  - Diarrhoea [Unknown]
  - Tremor [Not Recovered/Not Resolved]
  - Productive cough [Unknown]
  - Nasal congestion [Unknown]
  - Feeling abnormal [Not Recovered/Not Resolved]
